FAERS Safety Report 6933049-5 (Version None)
Quarter: 2010Q3

REPORT INFORMATION
  Report Type: 
  Country: None (occurrence: None)
  Receive Date: 20100818
  Receipt Date: 20100818
  Transmission Date: 20110219
  Serious: Yes (Hospitalization, Other)
  Sender: FDA-Public Use
  Company Number: None

PATIENT
  Age: 56 Year
  Sex: Female

DRUGS (5)
  1. LITHIUM CARBONATE [Suspect]
     Indication: MENTAL DISORDER
     Dosage: 300MG DAIL ORAL APPROXIMATELY 10-15 YEARS
     Route: 048
  2. LEVOTHYROXINE SODIUM [Concomitant]
  3. QUETIAPINE XR [Concomitant]
  4. HYDROXYZINE [Concomitant]
  5. ESZOPICLONE [Concomitant]

REACTIONS (1)
  - HYPERPARATHYROIDISM PRIMARY [None]
